FAERS Safety Report 10060162 (Version 1)
Quarter: 2014Q2

REPORT INFORMATION
  Report Type: Spontaneous
  Country: AT (occurrence: AT)
  Receive Date: 20140404
  Receipt Date: 20140404
  Transmission Date: 20141212
  Serious: Yes (Other)
  Sender: FDA-Public Use
  Company Number: PHHY2014AT039752

PATIENT
  Age: 64 Year
  Sex: Male

DRUGS (6)
  1. CIPROFLOXACIN [Suspect]
     Indication: ESCHERICHIA INFECTION
     Dosage: 400 MG, Q12H
  2. CIPROFLOXACIN [Suspect]
     Dosage: 400 MG, Q8H
  3. TIGECYCLINE [Concomitant]
     Dosage: 100 MG, Q12 HOUR
  4. FOSFOMYCIN [Concomitant]
     Dosage: 4 G, Q8H
  5. FOSFOMYCIN [Concomitant]
     Dosage: 8 G, Q12H
  6. ATORVASTATIN [Concomitant]
     Dosage: 80 MG, UNK

REACTIONS (4)
  - Rhabdomyolysis [Recovered/Resolved]
  - C-reactive protein increased [Recovered/Resolved]
  - Blood creatine phosphokinase increased [Recovered/Resolved]
  - Renal impairment [Recovered/Resolved]
